FAERS Safety Report 25575585 (Version 2)
Quarter: 2025Q4

REPORT INFORMATION
  Report Type: Report from Study
  Country: US (occurrence: US)
  Receive Date: 20250718
  Receipt Date: 20251004
  Transmission Date: 20260119
  Serious: No
  Sender: SUNOVION
  Company Number: US-SMPA-2025SPA008297AA

PATIENT
  Age: 76 Year
  Sex: Male

DRUGS (9)
  1. ORGOVYX [Suspect]
     Active Substance: RELUGOLIX
     Indication: Prostate cancer
     Dosage: 360 MG
     Route: 048
  2. ORGOVYX [Suspect]
     Active Substance: RELUGOLIX
     Dosage: 120 MG
     Route: 048
  3. ALPRAZOLAM [Concomitant]
     Active Substance: ALPRAZOLAM
  4. PRADAXA [Concomitant]
     Active Substance: DABIGATRAN ETEXILATE MESYLATE
  5. DOFETILIDE [Concomitant]
     Active Substance: DOFETILIDE
  6. FOLIC ACID [Concomitant]
     Active Substance: FOLIC ACID
  7. VITAMINS [Concomitant]
     Active Substance: VITAMINS
  8. IBUPROFEN [Concomitant]
     Active Substance: IBUPROFEN
     Dosage: UNK
  9. Tylen [Concomitant]
     Dosage: UNK

REACTIONS (9)
  - Brain fog [Unknown]
  - Influenza like illness [Unknown]
  - Migraine [Unknown]
  - Photophobia [Unknown]
  - Eye pain [Unknown]
  - Pain of skin [Unknown]
  - Arthralgia [Unknown]
  - Hot flush [Unknown]
  - Fatigue [Unknown]
